FAERS Safety Report 16988254 (Version 1)
Quarter: 2019Q4

REPORT INFORMATION
  Report Type: Spontaneous
  Country: DE (occurrence: DE)
  Receive Date: 20191104
  Receipt Date: 20191104
  Transmission Date: 20200122
  Serious: Yes (Other)
  Sender: FDA-Public Use
  Company Number: DE-ACCORD-159560

PATIENT
  Sex: Female

DRUGS (1)
  1. QUETIAPIN ACCORD [Suspect]
     Active Substance: QUETIAPINE
     Indication: PRODUCT USED FOR UNKNOWN INDICATION
     Dosage: STRENGTH 300 MG, 50 PACK
     Route: 048

REACTIONS (3)
  - Hot flush [Unknown]
  - Restlessness [Unknown]
  - Hallucination, auditory [Unknown]
